FAERS Safety Report 6044124-4 (Version None)
Quarter: 2009Q1

REPORT INFORMATION
  Report Type: 
  Country: None (occurrence: None)
  Receive Date: 20090120
  Receipt Date: 20090119
  Transmission Date: 20090719
  Serious: Yes (Disabling)
  Sender: FDA-Public Use
  Company Number: AU-ASTRAZENECA-2008AP09069

PATIENT
  Age: 65 Year
  Sex: Female
  Weight: 70 kg

DRUGS (6)
  1. ATACAND [Suspect]
     Indication: CEREBROVASCULAR ACCIDENT
     Route: 048
     Dates: start: 20070301
  2. ATACAND [Suspect]
     Indication: HYPERTENSION
     Route: 048
     Dates: start: 20070301
  3. DILTIAZEM [Concomitant]
     Route: 065
  4. LIPITOR [Concomitant]
     Route: 065
  5. EZETROL [Concomitant]
     Route: 065
  6. ISCOVER [Concomitant]
     Route: 065

REACTIONS (1)
  - AMNESIA [None]
